FAERS Safety Report 6052140-1 (Version None)
Quarter: 2009Q1

REPORT INFORMATION
  Report Type: 
  Country: None (occurrence: None)
  Receive Date: 20090126
  Receipt Date: 20090119
  Transmission Date: 20090719
  Serious: Yes (Hospitalization)
  Sender: FDA-Public Use
  Company Number: PHHO2007MX04154

PATIENT
  Age: 57 Year
  Sex: Male

DRUGS (1)
  1. DIOVAN HCT [Suspect]
     Indication: HYPERTENSION
     Dosage: 1 TABLET DAILY (160/25 MG)
     Route: 048
     Dates: start: 20061201, end: 20070201

REACTIONS (2)
  - CARDIAC DISORDER [None]
  - TACHYCARDIA [None]
